FAERS Safety Report 13136463 (Version 1)
Quarter: 2017Q1

REPORT INFORMATION
  Report Type: Spontaneous
  Country: US (occurrence: US)
  Receive Date: 20170122
  Receipt Date: 20170122
  Transmission Date: 20170428
  Serious: No
  Sender: FDA-Public Use
  Company Number: US-BIOGEN-2017BI00344314

PATIENT
  Sex: Female

DRUGS (1)
  1. AVONEX [Suspect]
     Active Substance: INTERFERON BETA-1A
     Indication: MULTIPLE SCLEROSIS
     Route: 065
     Dates: start: 20060609, end: 20130522

REACTIONS (4)
  - Loss of control of legs [Recovered/Resolved]
  - Headache [Recovered/Resolved]
  - Gait disturbance [Unknown]
  - Drug effect decreased [Unknown]
